FAERS Safety Report 21149303 (Version 1)
Quarter: 2022Q3

REPORT INFORMATION
  Report Type: Spontaneous
  Country: US (occurrence: US)
  Receive Date: 20220729
  Receipt Date: 20220729
  Transmission Date: 20221027
  Serious: No
  Sender: FDA-Public Use
  Company Number: US-NOVOPROD-918739

PATIENT
  Age: 70 Year
  Sex: Male

DRUGS (1)
  1. OZEMPIC [Suspect]
     Active Substance: SEMAGLUTIDE
     Indication: Product used for unknown indication
     Dosage: 0.25 MG, QW
     Route: 058
     Dates: start: 20220402, end: 20220507

REACTIONS (18)
  - Confusional state [Unknown]
  - Fall [Recovered/Resolved]
  - Speech disorder [Unknown]
  - Change of bowel habit [Not Recovered/Not Resolved]
  - Muscle twitching [Recovered/Resolved]
  - Mydriasis [Recovered/Resolved]
  - Unevaluable event [Recovered/Resolved]
  - Vision blurred [Not Recovered/Not Resolved]
  - Unevaluable event [Unknown]
  - Fall [Unknown]
  - Memory impairment [Unknown]
  - Speech disorder [Unknown]
  - Weight decreased [Unknown]
  - Diarrhoea [Not Recovered/Not Resolved]
  - Abdominal pain upper [Not Recovered/Not Resolved]
  - Dizziness [Unknown]
  - Dizziness [Unknown]
  - Blood glucose decreased [Not Recovered/Not Resolved]

NARRATIVE: CASE EVENT DATE: 20220101
